FAERS Safety Report 4665042-X (Version None)
Quarter: 2005Q2

REPORT INFORMATION
  Report Type: 
  Country: None (occurrence: None)
  Receive Date: 20050517
  Receipt Date: 20050426
  Transmission Date: 20051028
  Serious: Yes (Death)
  Sender: FDA-Public Use
  Company Number: DE_050415789

PATIENT
  Age: 81 Year
  Sex: Male
  Weight: 65 kg

DRUGS (3)
  1. ZYPREXA [Suspect]
     Dosage: 10 MG DAY
     Route: 048
     Dates: start: 20031121
  2. MELPERONE [Concomitant]
  3. CIATYL    (CLOPENTHIXOL HYDROCHLORIDE) [Concomitant]

REACTIONS (7)
  - BLOOD GLUCOSE INCREASED [None]
  - CONSTIPATION [None]
  - DRY MOUTH [None]
  - FALL [None]
  - PNEUMONIA [None]
  - PYOTHORAX [None]
  - TREMOR [None]
